FAERS Safety Report 8136397-9 (Version None)
Quarter: 2012Q1

REPORT INFORMATION
  Report Type: 
  Country: None (occurrence: None)
  Receive Date: 20120214
  Receipt Date: 20120203
  Transmission Date: 20120608
  Serious: Yes (Other)
  Sender: FDA-Public Use
  Company Number: US-ELI_LILLY_AND_COMPANY-US201202000813

PATIENT
  Sex: Female

DRUGS (1)
  1. FORTEO [Suspect]
     Indication: OSTEOPOROSIS
     Dosage: UNK
     Dates: start: 20110101, end: 20120101

REACTIONS (4)
  - HUMERUS FRACTURE [None]
  - SPINAL COMPRESSION FRACTURE [None]
  - PELVIC FRACTURE [None]
  - BLOOD CALCIUM INCREASED [None]
